FAERS Safety Report 6700172-X (Version None)
Quarter: 2010Q2

REPORT INFORMATION
  Report Type: 
  Country: None (occurrence: None)
  Receive Date: 20100426
  Receipt Date: 20091022
  Transmission Date: 20101027
  Serious: Yes (Hospitalization)
  Sender: FDA-Public Use
  Company Number: WAES 0910USA02816

PATIENT
  Age: 34 Year
  Sex: Male

DRUGS (1)
  1. SINGULAIR [Suspect]
     Indication: EAR INFECTION
     Dosage: PO
     Route: 048
     Dates: start: 20091003, end: 20091004

REACTIONS (1)
  - PARAESTHESIA [None]
